FAERS Safety Report 23627077 (Version 1)
Quarter: 2024Q1

REPORT INFORMATION
  Report Type: Report from Study
  Country: US (occurrence: US)
  Receive Date: 20240313
  Receipt Date: 20240313
  Transmission Date: 20240410
  Serious: No
  Sender: FDA-Public Use
  Company Number: US-SPRINGWORKS THERAPEUTICS-SW-001227

PATIENT
  Age: 58 Year
  Sex: Female

DRUGS (4)
  1. NIROGACESTAT [Suspect]
     Active Substance: NIROGACESTAT
     Indication: Product used for unknown indication
     Dosage: 50 MILLIGRAM, BID
     Dates: start: 20240112, end: 20240119
  2. NIROGACESTAT [Suspect]
     Active Substance: NIROGACESTAT
     Dosage: 100 MILLIGRAM, BID (2-50 MG TABLETS TWICE DAILY)
     Route: 048
     Dates: start: 20240119, end: 20240126
  3. NIROGACESTAT [Suspect]
     Active Substance: NIROGACESTAT
     Dosage: 150 MILLIGRAM, BID (3-50 MG TABLETS BID)
     Route: 048
     Dates: start: 20240126
  4. NIROGACESTAT [Suspect]
     Active Substance: NIROGACESTAT
     Dosage: 50 MG IN MORNING, 100 MG IN EVENING

REACTIONS (3)
  - Dyspepsia [Recovering/Resolving]
  - Ophthalmic migraine [Unknown]
  - Constipation [Unknown]

NARRATIVE: CASE EVENT DATE: 20240112
